FAERS Safety Report 15760324 (Version 3)
Quarter: 2019Q2

REPORT INFORMATION
  Report Type: Report from Study
  Country: US (occurrence: US)
  Receive Date: 20181226
  Receipt Date: 20190429
  Transmission Date: 20190711
  Serious: Yes (Other)
  Sender: FDA-Public Use
  Company Number: US-EMD SERONO-9061210

PATIENT
  Age: 57 Year
  Sex: Female
  Weight: 49 kg

DRUGS (5)
  1. REBIF [Suspect]
     Active Substance: INTERFERON BETA-1A
     Indication: MULTIPLE SCLEROSIS
     Route: 058
     Dates: start: 20100427
  2. REBIF [Suspect]
     Active Substance: INTERFERON BETA-1A
     Route: 058
  3. REBIF [Suspect]
     Active Substance: INTERFERON BETA-1A
     Route: 058
  4. REBIF [Suspect]
     Active Substance: INTERFERON BETA-1A
     Route: 058
  5. REBIF [Suspect]
     Active Substance: INTERFERON BETA-1A
     Route: 058
     Dates: start: 2016

REACTIONS (8)
  - Vagus nerve disorder [Unknown]
  - Poor quality sleep [Unknown]
  - Panic attack [Unknown]
  - Depression [Recovering/Resolving]
  - Anxiety [Recovering/Resolving]
  - Impaired gastric emptying [Unknown]
  - Total bile acids increased [Unknown]
  - Mental disorder [Unknown]

NARRATIVE: CASE EVENT DATE: 201812
